FAERS Safety Report 5075882-3 (Version None)
Quarter: 2006Q3

REPORT INFORMATION
  Report Type: 
  Country: None (occurrence: None)
  Receive Date: 20060807
  Receipt Date: 20060807
  Transmission Date: 20061208
  Serious: Yes (Life-Threatening)
  Sender: FDA-Public Use
  Company Number: None

PATIENT
  Sex: Female

DRUGS (1)
  1. ACETAMINOPHEN [Suspect]
     Indication: OVERDOSE

REACTIONS (8)
  - DEHYDRATION [None]
  - DIARRHOEA [None]
  - GASTROENTERITIS [None]
  - HEPATIC ENZYME INCREASED [None]
  - PYREXIA [None]
  - URINE OUTPUT DECREASED [None]
  - VIRAL INFECTION [None]
  - VOMITING [None]
